FAERS Safety Report 13303582 (Version 4)
Quarter: 2018Q4

REPORT INFORMATION
  Report Type: Spontaneous
  Country: US (occurrence: US)
  Receive Date: 20170307
  Receipt Date: 20181218
  Transmission Date: 20190204
  Serious: Yes (Hospitalization)
  Sender: FDA-Public Use
  Company Number: US-ACTELION-A-US2017-150727

PATIENT
  Age: 57 Year
  Sex: Female
  Weight: 99.77 kg

DRUGS (3)
  1. OPSUMIT [Suspect]
     Active Substance: MACITENTAN
     Indication: PULMONARY ARTERIAL HYPERTENSION
     Dosage: 10 MG, QD
     Route: 048
  2. REMODULIN [Concomitant]
     Active Substance: TREPROSTINIL
     Route: 042
  3. SILDENAFIL CITRATE. [Concomitant]
     Active Substance: SILDENAFIL CITRATE

REACTIONS (5)
  - Syncope [Unknown]
  - Catheter management [Unknown]
  - Device related sepsis [Unknown]
  - Device issue [Unknown]
  - Bacterial infection [Unknown]

NARRATIVE: CASE EVENT DATE: 20170314
